FAERS Safety Report 9469575 (Version 1)
Quarter: 2013Q3

REPORT INFORMATION
  Report Type: Spontaneous
  Country: US (occurrence: US)
  Receive Date: 20130822
  Receipt Date: 20130822
  Transmission Date: 20140515
  Serious: Yes (Other)
  Sender: FDA-Public Use
  Company Number: US-ASTRAZENECA-2013SE63722

PATIENT
  Age: 73 Year
  Sex: Female
  Weight: 81.6 kg

DRUGS (15)
  1. ENTOCORT EC [Suspect]
     Indication: COLITIS ULCERATIVE
     Route: 048
  2. ENTOCORT EC [Suspect]
     Indication: COLITIS ULCERATIVE
     Route: 048
  3. METOPROLOL SUCCINATE [Suspect]
     Indication: BLOOD PRESSURE ABNORMAL
     Route: 048
  4. FUROSEMIDE [Concomitant]
     Indication: FLUID RETENTION
     Route: 048
  5. SIMVASTATIN [Concomitant]
     Indication: BLOOD CHOLESTEROL INCREASED
     Route: 048
  6. POTASSIUM CH [Concomitant]
     Indication: SUPPLEMENTATION THERAPY
     Route: 048
  7. ALLOPURINOL [Concomitant]
     Indication: GOUT
     Route: 048
  8. CLOPIDOGREL [Concomitant]
     Indication: CARDIAC DISORDER
     Route: 048
  9. LEVOTHYROXINE [Concomitant]
     Indication: HYPERTHYROIDISM
     Route: 048
  10. GLIPIZIDE [Concomitant]
     Indication: DIABETES MELLITUS
     Route: 048
  11. SULFASALAZINE [Concomitant]
     Indication: COLITIS
     Route: 048
  12. MOPERAMIDE [Concomitant]
     Route: 048
  13. RANITIDINE [Concomitant]
     Indication: DYSPEPSIA
     Route: 048
  14. PROBIOTIC OTC [Concomitant]
     Route: 048
  15. MECLIZINE [Concomitant]
     Indication: DIZZINESS
     Route: 048

REACTIONS (9)
  - Extrasystoles [Unknown]
  - Loss of consciousness [Unknown]
  - Colitis ulcerative [Unknown]
  - Unresponsive to stimuli [Unknown]
  - Blood glucose decreased [Unknown]
  - Weight decreased [Unknown]
  - Dizziness [Unknown]
  - Diarrhoea [Recovered/Resolved]
  - Off label use [Recovered/Resolved]
